FAERS Safety Report 23293744 (Version 1)
Quarter: 2023Q4

REPORT INFORMATION
  Report Type: Spontaneous
  Country: CN (occurrence: CN)
  Receive Date: 20231213
  Receipt Date: 20231213
  Transmission Date: 20240109
  Serious: Yes (Hospitalization, Other)
  Sender: FDA-Public Use
  Company Number: CN-UNITED THERAPEUTICS-UNT-2023-034896

PATIENT

DRUGS (2)
  1. REMODULIN [Suspect]
     Active Substance: TREPROSTINIL
     Indication: Newborn persistent pulmonary hypertension
     Dosage: 0.004 ?G/KG, CONTINUING
     Route: 041
  2. OXYGEN [Concomitant]
     Active Substance: OXYGEN
     Indication: Newborn persistent pulmonary hypertension
     Route: 065

REACTIONS (1)
  - Pulmonary air leakage [Unknown]
